FAERS Safety Report 18729330 (Version 1)
Quarter: 2021Q1

REPORT INFORMATION
  Report Type: Report from Study
  Country: US (occurrence: US)
  Receive Date: 20210112
  Receipt Date: 20210112
  Transmission Date: 20210419
  Serious: Yes (Death, Other)
  Sender: FDA-Public Use
  Company Number: NVSC2021US005285

PATIENT
  Sex: Female

DRUGS (2)
  1. PIQRAY [Suspect]
     Active Substance: ALPELISIB
     Indication: BONE CANCER
  2. PIQRAY [Suspect]
     Active Substance: ALPELISIB
     Indication: MALIGNANT NIPPLE NEOPLASM
     Dosage: 300 MG, QD
     Route: 048

REACTIONS (1)
  - Death [Fatal]
